FAERS Safety Report 25087536 (Version 5)
Quarter: 2025Q3

REPORT INFORMATION
  Report Type: Report from Study
  Country: JP (occurrence: JP)
  Receive Date: 20250318
  Receipt Date: 20250916
  Transmission Date: 20251020
  Serious: Yes (Other)
  Sender: SANOFI AVENTIS
  Company Number: JP-SAKK-2025SA070117AA

PATIENT
  Age: 69 Year
  Sex: Male
  Weight: 53.3 kg

DRUGS (31)
  1. ISATUXIMAB [Suspect]
     Active Substance: ISATUXIMAB
     Indication: Plasma cell myeloma refractory
     Dosage: 10 MG/KG, QW
     Route: 041
     Dates: start: 20240221, end: 20240306
  2. ISATUXIMAB [Suspect]
     Active Substance: ISATUXIMAB
     Route: 041
     Dates: start: 20240314, end: 20240314
  3. ISATUXIMAB [Suspect]
     Active Substance: ISATUXIMAB
     Dosage: 10 MG/KG, QOW
     Route: 041
     Dates: start: 20240418, end: 20241212
  4. ISATUXIMAB [Suspect]
     Active Substance: ISATUXIMAB
     Dosage: 20 MG/KG, QOW
     Route: 041
     Dates: start: 20241226, end: 20250206
  5. CARFILZOMIB [Suspect]
     Active Substance: CARFILZOMIB
     Indication: Plasma cell myeloma refractory
     Dosage: 20 MG/M2, QD
     Route: 065
     Dates: start: 20240221, end: 20240222
  6. CARFILZOMIB [Suspect]
     Active Substance: CARFILZOMIB
     Dosage: 56 MG/M2, QD
     Route: 065
     Dates: start: 20240228, end: 20240229
  7. CARFILZOMIB [Suspect]
     Active Substance: CARFILZOMIB
     Dosage: 56 MG/M2, QD
     Route: 065
     Dates: start: 20240306, end: 20240307
  8. CARFILZOMIB [Suspect]
     Active Substance: CARFILZOMIB
     Dosage: 56 MG/M2, QD
     Route: 065
     Dates: start: 20240321, end: 20240322
  9. CARFILZOMIB [Suspect]
     Active Substance: CARFILZOMIB
     Dosage: 56 MG/M2, QD
     Route: 065
     Dates: start: 20240404, end: 20240405
  10. CARFILZOMIB [Suspect]
     Active Substance: CARFILZOMIB
     Dosage: 56 MG/M2, QD
     Route: 065
     Dates: start: 20240418, end: 20240419
  11. CARFILZOMIB [Suspect]
     Active Substance: CARFILZOMIB
     Route: 065
     Dates: start: 20240502, end: 20240502
  12. CARFILZOMIB [Suspect]
     Active Substance: CARFILZOMIB
     Dosage: 45/DAY, BIW
     Route: 065
     Dates: start: 20240516, end: 20240531
  13. CARFILZOMIB [Suspect]
     Active Substance: CARFILZOMIB
     Dosage: 45/DAY, BIW
     Route: 065
     Dates: start: 20240613, end: 20240628
  14. CARFILZOMIB [Suspect]
     Active Substance: CARFILZOMIB
     Dosage: 45/DAY, BIW
     Route: 065
     Dates: start: 20240711, end: 20240726
  15. CARFILZOMIB [Suspect]
     Active Substance: CARFILZOMIB
     Dosage: 45/DAY, QD
     Route: 065
     Dates: start: 20240808, end: 20240809
  16. CARFILZOMIB [Suspect]
     Active Substance: CARFILZOMIB
     Dosage: 36/DAY, BIW
     Route: 065
     Dates: start: 20240815, end: 20240823
  17. CARFILZOMIB [Suspect]
     Active Substance: CARFILZOMIB
     Dosage: 36/DAY, QD
     Route: 065
     Dates: start: 20240905, end: 20240906
  18. CARFILZOMIB [Suspect]
     Active Substance: CARFILZOMIB
     Dosage: 36/DAY, QD
     Route: 065
     Dates: start: 20240912, end: 20240912
  19. CARFILZOMIB [Suspect]
     Active Substance: CARFILZOMIB
     Dosage: 36/DAY, QW
     Route: 065
     Dates: start: 20241003, end: 20241010
  20. DEXAMETHASONE [Suspect]
     Active Substance: DEXAMETHASONE
     Indication: Plasma cell myeloma refractory
     Dosage: 20 MG, BIW
     Route: 065
     Dates: start: 20240221, end: 20240307
  21. DEXAMETHASONE [Suspect]
     Active Substance: DEXAMETHASONE
     Dosage: 20 MG, BIW
     Route: 065
     Dates: start: 20240314, end: 20240419
  22. DEXAMETHASONE [Suspect]
     Active Substance: DEXAMETHASONE
     Dosage: 12/DAY, BIW
     Route: 065
     Dates: start: 20240516, end: 20240607
  23. DEXAMETHASONE [Suspect]
     Active Substance: DEXAMETHASONE
     Dosage: 4/DAY, BIW
     Route: 065
     Dates: start: 20240613, end: 20240823
  24. DEXAMETHASONE [Suspect]
     Active Substance: DEXAMETHASONE
     Dosage: 4/DAY, QD
     Route: 065
     Dates: start: 20240905, end: 20240906
  25. DEXAMETHASONE [Suspect]
     Active Substance: DEXAMETHASONE
     Dosage: 4/DAY, QW
     Route: 065
     Dates: start: 20240912, end: 20240919
  26. DEXAMETHASONE [Suspect]
     Active Substance: DEXAMETHASONE
     Dosage: 4/DAY, QW
     Route: 065
     Dates: start: 20241003, end: 20241017
  27. DEXAMETHASONE [Suspect]
     Active Substance: DEXAMETHASONE
     Dosage: 4/DAY, QOW
     Route: 065
     Dates: start: 20241031, end: 20250206
  28. DEXAMETHASONE [Suspect]
     Active Substance: DEXAMETHASONE
     Dosage: 20 MG, QD
     Route: 065
     Dates: start: 20240502, end: 20240503
  29. DEXAMETHASONE [Suspect]
     Active Substance: DEXAMETHASONE
     Route: 065
     Dates: start: 20240510, end: 20240510
  30. SULFAMETHOXAZOLE\TRIMETHOPRIM [Suspect]
     Active Substance: SULFAMETHOXAZOLE\TRIMETHOPRIM
     Indication: Product used for unknown indication
     Route: 065
  31. LANSOPRAZOLE [Suspect]
     Active Substance: LANSOPRAZOLE
     Indication: Product used for unknown indication
     Route: 065

REACTIONS (10)
  - Hypogammaglobulinaemia [Recovered/Resolved]
  - Hypogammaglobulinaemia [Recovered/Resolved]
  - Hypogammaglobulinaemia [Recovered/Resolved]
  - Hypogammaglobulinaemia [Recovered/Resolved]
  - Cardiac failure [Recovering/Resolving]
  - Eczema [Recovered/Resolved]
  - Decreased appetite [Recovered/Resolved]
  - Oedema [Recovered/Resolved]
  - Fatigue [Recovered/Resolved]
  - Malaise [Recovering/Resolving]

NARRATIVE: CASE EVENT DATE: 20240326
